FAERS Safety Report 10025907 (Version 3)
Quarter: 2014Q2

REPORT INFORMATION
  Report Type: Report from Study
  Country: BE (occurrence: BE)
  Receive Date: 20140320
  Receipt Date: 20140408
  Transmission Date: 20141212
  Serious: Yes (Hospitalization)
  Sender: FDA-Public Use
  Company Number: BE-BAXTER-2014BAX011818

PATIENT
  Age: 4 Year
  Sex: Male

DRUGS (2)
  1. ADVATE 1000 UI [Suspect]
     Indication: FACTOR VIII DEFICIENCY
     Dosage: 500 IE
     Route: 051
     Dates: start: 20140303
  2. ADVATE 1000 UI [Suspect]
     Dosage: 500 IE
     Route: 051
     Dates: start: 20140305

REACTIONS (2)
  - Pyrexia [Recovered/Resolved]
  - Device related infection [Recovered/Resolved]
